FAERS Safety Report 14678236 (Version 1)
Quarter: 2018Q1

REPORT INFORMATION
  Report Type: Spontaneous
  Country: None (occurrence: US)
  Receive Date: 20180326
  Receipt Date: 20180326
  Transmission Date: 20180509
  Serious: Yes (Other)
  Sender: FDA-Public Use
  Company Number: US-KITE, A GILEAD COMPANY-2044483

PATIENT
  Age: 19 Year
  Sex: Male

DRUGS (1)
  1. YESCARTA [Suspect]
     Active Substance: AXICABTAGENE CILOLEUCEL
     Indication: DIFFUSE LARGE B-CELL LYMPHOMA
     Route: 042
     Dates: start: 20180307, end: 20180307

REACTIONS (1)
  - Diabetes insipidus [Unknown]

NARRATIVE: CASE EVENT DATE: 201803
